FAERS Safety Report 20443339 (Version 3)
Quarter: 2022Q1

REPORT INFORMATION
  Report Type: Spontaneous
  Country: US (occurrence: US)
  Receive Date: 20220208
  Receipt Date: 20220208
  Transmission Date: 20220423
  Serious: No
  Sender: FDA-Public Use
  Company Number: US-ALLERGAN-2123534US

PATIENT
  Sex: Female

DRUGS (6)
  1. OXYTROL FOR WOMEN [Suspect]
     Active Substance: OXYBUTYNIN
     Indication: Product used for unknown indication
     Dosage: UNK UNK, BI-WEEKLY
  2. OXYTROL FOR WOMEN [Suspect]
     Active Substance: OXYBUTYNIN
     Indication: Product used for unknown indication
     Dosage: UNK, Q WEEK
  3. OXYTROL FOR WOMEN [Suspect]
     Active Substance: OXYBUTYNIN
  4. OXYTROL FOR WOMEN [Suspect]
     Active Substance: OXYBUTYNIN
     Indication: Product used for unknown indication
     Dosage: UNK, BI-WEEKLY
  5. OXYTROL FOR WOMEN [Suspect]
     Active Substance: OXYBUTYNIN
  6. OXYTROL FOR WOMEN [Suspect]
     Active Substance: OXYBUTYNIN

REACTIONS (4)
  - Abdominal pain lower [Not Recovered/Not Resolved]
  - Inappropriate schedule of product administration [Unknown]
  - Product residue present [Unknown]
  - Product complaint [Unknown]
